FAERS Safety Report 15975854 (Version 2)
Quarter: 2019Q1

REPORT INFORMATION
  Report Type: Other
  Country: SE (occurrence: SE)
  Receive Date: 20190218
  Receipt Date: 20190311
  Transmission Date: 20190418
  Serious: Yes (Other)
  Sender: FDA-Public Use
  Company Number: SE-HQ SPECIALTY-SE-2019INT000042

PATIENT

DRUGS (1)
  1. DEXMEDETOMIDINE HYDROCHLORIDE. [Suspect]
     Active Substance: DEXMEDETOMIDINE HYDROCHLORIDE
     Indication: SEDATIVE THERAPY
     Dosage: 100 MCG/ML (4 UG/KG)
     Route: 045
     Dates: start: 20190116, end: 20190116

REACTIONS (4)
  - Product administered to patient of inappropriate age [Unknown]
  - Hyperaesthesia [Recovered/Resolved]
  - Agitation [Recovered/Resolved]
  - Product use issue [Unknown]

NARRATIVE: CASE EVENT DATE: 20190116
